FAERS Safety Report 15611500 (Version 1)
Quarter: 2018Q4

REPORT INFORMATION
  Report Type: Spontaneous
  Country: PT (occurrence: PT)
  Receive Date: 20181113
  Receipt Date: 20181113
  Transmission Date: 20190205
  Serious: Yes (Disabling)
  Sender: FDA-Public Use
  Company Number: PT-AUROBINDO-AUR-APL-2018-053475

PATIENT
  Age: 77 Year
  Sex: Female
  Weight: 80 kg

DRUGS (3)
  1. PANTOPRAZOLE GENERIS GASTRO-RESISTANT TABLET [Suspect]
     Active Substance: PANTOPRAZOLE
     Indication: HIATUS HERNIA
     Dosage: 1 DOSAGE FORM, DAILY
     Route: 048
     Dates: start: 2012, end: 201810
  2. LORENIN [Concomitant]
     Active Substance: LORAZEPAM
     Indication: INSOMNIA
     Dosage: 1 DOSAGE FORM, DAILY
     Route: 048
  3. LEXOTAN [Concomitant]
     Active Substance: BROMAZEPAM
     Indication: INSOMNIA
     Dosage: 1 DOSAGE FORM, DAILY
     Route: 048

REACTIONS (13)
  - Constipation [Not Recovered/Not Resolved]
  - Arthropathy [Not Recovered/Not Resolved]
  - Feeling hot [Not Recovered/Not Resolved]
  - Urine odour abnormal [Not Recovered/Not Resolved]
  - Epistaxis [Not Recovered/Not Resolved]
  - Dizziness [Not Recovered/Not Resolved]
  - Fatigue [Not Recovered/Not Resolved]
  - Back pain [Not Recovered/Not Resolved]
  - Visual impairment [Not Recovered/Not Resolved]
  - Body mass index increased [Not Recovered/Not Resolved]
  - Burning sensation [Not Recovered/Not Resolved]
  - Acne [Not Recovered/Not Resolved]
  - Pruritus generalised [Not Recovered/Not Resolved]

NARRATIVE: CASE EVENT DATE: 2012
